FAERS Safety Report 4351366-2 (Version None)
Quarter: 2004Q2

REPORT INFORMATION
  Report Type: 
  Country: None (occurrence: None)
  Receive Date: 20040428
  Receipt Date: 20040413
  Transmission Date: 20050107
  Serious: Yes (Hospitalization)
  Sender: FDA-Public Use
  Company Number: US_0404102312

PATIENT
  Age: 76 Year
  Sex: Male

DRUGS (5)
  1. HUMULIN N [Suspect]
     Indication: DIABETES MELLITUS
     Dosage: 34 U DAY
     Dates: start: 19820101
  2. PLAVIX [Concomitant]
  3. LIPITOR [Concomitant]
  4. METOCLOPRAMIDE [Concomitant]
  5. ALPRAZOLAM [Concomitant]

REACTIONS (2)
  - BLOOD GLUCOSE INCREASED [None]
  - CORONARY ARTERY SURGERY [None]
